FAERS Safety Report 8936283 (Version 1)
Quarter: 2012Q4

REPORT INFORMATION
  Report Type: Report from Study
  Country: US (occurrence: US)
  Receive Date: 20121130
  Receipt Date: 20121130
  Transmission Date: 20130627
  Serious: No
  Sender: FDA-Public Use
  Company Number: US-ABBOTT-12P-163-0978368-00

PATIENT
  Sex: Male
  Weight: 106.69 kg

DRUGS (7)
  1. ANDROGEL [Suspect]
     Indication: BLOOD TESTOSTERONE DECREASED
     Dosage: 1 pump per day
     Dates: start: 201208
  2. UNKNOWN MEDICATION [Concomitant]
     Indication: BLOOD PRESSURE ABNORMAL
  3. UNKNOWN MEDICATION [Concomitant]
     Indication: BLOOD CHOLESTEROL ABNORMAL
  4. UNKNOWN MEDICATION [Concomitant]
     Indication: DEPRESSION
  5. UNKNOWN MEDICATION [Concomitant]
     Indication: THYROID DISORDER
  6. UNKNOWN MEDICATION [Concomitant]
     Indication: BACK PAIN
  7. ASPIRIN [Concomitant]
     Indication: PRODUCT USED FOR UNKNOWN INDICATION

REACTIONS (1)
  - Drug ineffective [Unknown]
